FAERS Safety Report 5500103-4 (Version None)
Quarter: 2007Q4

REPORT INFORMATION
  Report Type: 
  Country: None (occurrence: None)
  Receive Date: 20071024
  Receipt Date: 20071009
  Transmission Date: 20080405
  Serious: Yes (Hospitalization)
  Sender: FDA-Public Use
  Company Number: TNZUK200700100

PATIENT
  Age: 79 Year
  Sex: Female
  Weight: 68 kg

DRUGS (4)
  1. INNOHEP [Suspect]
     Indication: THROMBOSIS PROPHYLAXIS
     Dosage: (3500 IU, DAILY), SUBCUTANEOUS
     Route: 058
     Dates: start: 20070913, end: 20070917
  2. BENDROFLUAZIDE (BENDROFLUMETHIAZIDE) [Concomitant]
  3. SIMVASTATIN [Concomitant]
  4. ADALAT [Concomitant]

REACTIONS (2)
  - POST PROCEDURAL COMPLICATION [None]
  - WOUND SECRETION [None]
